FAERS Safety Report 4776156-8 (Version None)
Quarter: 2005Q3

REPORT INFORMATION
  Report Type: 
  Country: None (occurrence: None)
  Receive Date: 20050914
  Receipt Date: 20050323
  Transmission Date: 20060218
  Serious: Yes (Death, Other)
  Sender: FDA-Public Use
  Company Number: 163-20785-05030663

PATIENT
  Age: 75 Year
  Sex: Female

DRUGS (3)
  1. THALOMID [Suspect]
     Indication: LEUKAEMIA PLASMACYTIC
     Dosage: 100 MG DAILY,  ORAL
     Route: 048
     Dates: start: 20041201, end: 20050101
  2. THALOMID [Suspect]
     Indication: MULTIPLE MYELOMA
     Dosage: 100 MG DAILY,  ORAL
     Route: 048
     Dates: start: 20041201, end: 20050101
  3. DIFLUCAN [Concomitant]

REACTIONS (3)
  - DEATH [None]
  - DISEASE PROGRESSION [None]
  - HYPERBILIRUBINAEMIA [None]
